FAERS Safety Report 6003149-5 (Version None)
Quarter: 2008Q4

REPORT INFORMATION
  Report Type: 
  Country: None (occurrence: None)
  Receive Date: 20081216
  Receipt Date: 20081205
  Transmission Date: 20090506
  Serious: Yes (Hospitalization)
  Sender: FDA-Public Use
  Company Number: JP-JNJFOC-20081104945

PATIENT
  Sex: Female

DRUGS (8)
  1. CRAVIT [Suspect]
     Indication: BRONCHITIS
     Route: 048
  2. THEO-DUR [Suspect]
     Indication: BRONCHIAL DISORDER
     Route: 048
  3. CELTOMIDE [Suspect]
     Indication: ALLERGY PROPHYLAXIS
     Route: 048
  4. AMBROXOL [Concomitant]
     Indication: PRODUCTIVE COUGH
     Route: 048
  5. HOKUNALIN TAPE [Concomitant]
     Indication: BRONCHIAL DISORDER
     Route: 062
  6. VENETLIN [Concomitant]
     Route: 055
  7. VENETLIN [Concomitant]
     Indication: BRONCHIAL DISORDER
     Route: 055
  8. ASTOMARI [Concomitant]
     Indication: ANTITUSSIVE THERAPY
     Route: 048

REACTIONS (3)
  - LIVER DISORDER [None]
  - NAUSEA [None]
  - PYURIA [None]
